FAERS Safety Report 7952617-5 (Version None)
Quarter: 2011Q4

REPORT INFORMATION
  Report Type: 
  Country: None (occurrence: None)
  Receive Date: 20111201
  Receipt Date: 20111121
  Transmission Date: 20120403
  Serious: Yes (Hospitalization, Other)
  Sender: FDA-Public Use
  Company Number: GB-JNJFOC-20111001158

PATIENT
  Sex: Female

DRUGS (9)
  1. BENDROFLUMETHIAZIDE [Concomitant]
     Indication: HYPERTENSION
  2. GOLIMUMAB [Suspect]
     Indication: RHEUMATOID ARTHRITIS
     Route: 058
     Dates: start: 20110504
  3. LEVOTHYROXINE SODIUM [Concomitant]
  4. GOLIMUMAB [Suspect]
     Route: 058
     Dates: start: 20110923
  5. IBUPROFEN [Concomitant]
     Indication: ARTHRALGIA
  6. METHOTREXATE [Concomitant]
     Indication: RHEUMATOID ARTHRITIS
     Dates: start: 20060626
  7. FOLIC ACID [Concomitant]
     Indication: PROPHYLAXIS
     Dates: start: 20060626
  8. ALL OTHER THERAPEUTIC PRODUCTS [Concomitant]
     Indication: RHEUMATOID ARTHRITIS
  9. LEVOTHYROXINE SODIUM [Concomitant]
     Indication: HYPOTHYROIDISM

REACTIONS (2)
  - MACULAR DEGENERATION [None]
  - PROCTITIS ULCERATIVE [None]
